FAERS Safety Report 25911447 (Version 1)
Quarter: 2025Q4

REPORT INFORMATION
  Report Type: Spontaneous
  Country: CR (occurrence: CR)
  Receive Date: 20251013
  Receipt Date: 20251013
  Transmission Date: 20260118
  Serious: Yes (Hospitalization, Disabling)
  Sender: SANOFI AVENTIS
  Company Number: CR-SA-2025SA295964

PATIENT
  Age: 52 Year
  Sex: Male

DRUGS (2)
  1. LANTUS SOLOSTAR [Suspect]
     Active Substance: INSULIN GLARGINE
     Indication: Type 2 diabetes mellitus
     Dosage: [ 18 IU AM/ 16 IU PM]
     Route: 058
     Dates: start: 202507, end: 2025
  2. LANTUS SOLOSTAR [Suspect]
     Active Substance: INSULIN GLARGINE
     Dosage: [ 18 IU AM/ 16 IU PM]
     Route: 058
     Dates: start: 20250914

REACTIONS (7)
  - Diabetic foot [Recovering/Resolving]
  - Sensory loss [Recovering/Resolving]
  - Limb injury [Recovering/Resolving]
  - Bacterial infection [Recovering/Resolving]
  - Impaired healing [Unknown]
  - Hyperglycaemia [Not Recovered/Not Resolved]
  - Intentional product misuse [Unknown]

NARRATIVE: CASE EVENT DATE: 20250101
